FAERS Safety Report 7584135-0 (Version None)
Quarter: 2011Q2

REPORT INFORMATION
  Report Type: 
  Country: None (occurrence: None)
  Receive Date: 20110630
  Receipt Date: 20110623
  Transmission Date: 20111010
  Serious: Yes (Other)
  Sender: FDA-Public Use
  Company Number: US-PFIZER INC-2011140858

PATIENT
  Sex: Female

DRUGS (4)
  1. ADVIL LIQUI-GELS [Suspect]
     Indication: BACK PAIN
     Dosage: UNK
  2. VICODIN [Suspect]
     Dosage: UNK
  3. NAPROXEN [Concomitant]
     Dosage: UNK
  4. GABAPENTIN [Suspect]
     Indication: BACK PAIN
     Dosage: 600 MG, 4X/DAY

REACTIONS (6)
  - THINKING ABNORMAL [None]
  - SCREAMING [None]
  - DRUG EFFECT DECREASED [None]
  - MAJOR DEPRESSION [None]
  - MOOD SWINGS [None]
  - AGGRESSION [None]
